FAERS Safety Report 9030302 (Version 3)
Quarter: 2013Q2

REPORT INFORMATION
  Report Type: Spontaneous
  Country: RU (occurrence: RU)
  Receive Date: 20130122
  Receipt Date: 20130517
  Transmission Date: 20140414
  Serious: Yes (Other)
  Sender: FDA-Public Use
  Company Number: RU-BRISTOL-MYERS SQUIBB COMPANY-17299850

PATIENT
  Age: 69 Year
  Sex: Female

DRUGS (5)
  1. SAXAGLIPTIN [Suspect]
     Indication: TYPE 2 DIABETES MELLITUS
     Dosage: ONG
     Dates: start: 201112
  2. GLUCOPHAGE [Concomitant]
  3. ALPHA D3 [Concomitant]
  4. TEVAPIRIN [Concomitant]
  5. BONVIVA [Concomitant]
     Route: 042

REACTIONS (1)
  - Colon adenoma [Recovered/Resolved]
